FAERS Safety Report 18798383 (Version 1)
Quarter: 2021Q1

REPORT INFORMATION
  Report Type: Spontaneous
  Country: US (occurrence: US)
  Receive Date: 20210127
  Receipt Date: 20210127
  Transmission Date: 20210419
  Serious: Yes (Death, Hospitalization)
  Sender: FDA-Public Use
  Company Number: None

PATIENT
  Age: 72 Year
  Sex: Male

DRUGS (10)
  1. ESBRIET [Suspect]
     Active Substance: PIRFENIDONE
     Indication: IDIOPATHIC PULMONARY FIBROSIS
     Route: 048
     Dates: start: 20200423, end: 20210122
  2. FUROSEMIDE. [Concomitant]
     Active Substance: FUROSEMIDE
  3. SILDENAFIL. [Concomitant]
     Active Substance: SILDENAFIL
  4. LISINOPRIL. [Concomitant]
     Active Substance: LISINOPRIL
  5. GABAPENTIN. [Concomitant]
     Active Substance: GABAPENTIN
  6. VIMPAT [Concomitant]
     Active Substance: LACOSAMIDE
  7. ATORVASTATIN [Concomitant]
     Active Substance: ATORVASTATIN
  8. LEVETIRACETA [Concomitant]
     Active Substance: LEVETIRACETAM
  9. METOPROL SUC ER [Concomitant]
     Active Substance: METOPROLOL SUCCINATE
  10. WARFARIN [Concomitant]
     Active Substance: WARFARIN

REACTIONS (1)
  - Hospitalisation [None]

NARRATIVE: CASE EVENT DATE: 20210122
